FAERS Safety Report 6317907-0 (Version None)
Quarter: 2009Q3

REPORT INFORMATION
  Report Type: 
  Country: None (occurrence: None)
  Receive Date: 20090821
  Receipt Date: 20090818
  Transmission Date: 20100115
  Serious: Yes (Life-Threatening, Other)
  Sender: FDA-Public Use
  Company Number: PR-JNJFOC-20090806249

PATIENT
  Age: 46 Year
  Sex: Male

DRUGS (7)
  1. HALOPERIDOL [Suspect]
     Indication: DRUG USE FOR UNKNOWN INDICATION
     Dosage: 30 PILLS
     Route: 048
  2. CHLORZOXAZONE [Suspect]
     Indication: DRUG USE FOR UNKNOWN INDICATION
     Dosage: 48 PILLS
     Route: 048
  3. NAPROXEN [Suspect]
     Indication: DRUG USE FOR UNKNOWN INDICATION
     Dosage: 20 PILLS
     Route: 048
  4. DIPHENHYDRAMINE HCL [Suspect]
     Indication: DRUG USE FOR UNKNOWN INDICATION
     Dosage: 30 PILLS
     Route: 048
  5. DOLAGESIC [Suspect]
     Indication: DRUG USE FOR UNKNOWN INDICATION
     Dosage: 20 PILLS
     Route: 048
  6. CYCLOBENZAPRINE [Suspect]
     Indication: DRUG USE FOR UNKNOWN INDICATION
     Dosage: 20 PILLS
     Route: 048
  7. CEPHALEXIN [Suspect]
     Indication: DRUG USE FOR UNKNOWN INDICATION
     Dosage: 14 PILLS
     Route: 048

REACTIONS (4)
  - MECHANICAL VENTILATION [None]
  - METHAEMOGLOBINAEMIA [None]
  - MULTIPLE DRUG OVERDOSE INTENTIONAL [None]
  - UNRESPONSIVE TO STIMULI [None]
